FAERS Safety Report 9744081 (Version 1)
Quarter: 2013Q4

REPORT INFORMATION
  Report Type: Spontaneous
  Country: FR (occurrence: FR)
  Receive Date: 20131210
  Receipt Date: 20131210
  Transmission Date: 20140711
  Serious: Yes (Life-Threatening, Hospitalization)
  Sender: FDA-Public Use
  Company Number: FR-PFIZER INC-2013350270

PATIENT
  Age: 47 Year
  Sex: Female

DRUGS (3)
  1. ADVIL [Suspect]
     Indication: ARTHRALGIA
     Dosage: UNK
     Dates: start: 20131005, end: 20131007
  2. BI PROFENID [Suspect]
     Indication: ARTHRALGIA
     Dosage: UNK
     Dates: start: 20131017, end: 20131027
  3. CELLCEPT [Concomitant]

REACTIONS (5)
  - Renal failure acute [Recovering/Resolving]
  - Diarrhoea [Recovering/Resolving]
  - Vomiting [Recovering/Resolving]
  - Dehydration [Recovering/Resolving]
  - Pericardial effusion [Recovering/Resolving]
